FAERS Safety Report 9621601 (Version 1)
Quarter: 2013Q4

REPORT INFORMATION
  Report Type: Spontaneous
  Country: US (occurrence: US)
  Receive Date: 20131015
  Receipt Date: 20131015
  Transmission Date: 20140711
  Serious: No
  Sender: FDA-Public Use
  Company Number: US-PFIZER INC-2013295035

PATIENT
  Age: 62 Year
  Sex: Male
  Weight: 104 kg

DRUGS (3)
  1. LYRICA [Suspect]
     Indication: LIMB DISCOMFORT
     Dosage: 50 MG, DAILY
     Route: 048
     Dates: start: 20121212
  2. TYLENOL [Suspect]
     Indication: PAIN IN EXTREMITY
     Dosage: 1000 MG, AS NEEDED
     Route: 048
  3. SYNTHROID [Concomitant]
     Indication: THYROID DISORDER
     Dosage: ^1.75MG^ DAILY

REACTIONS (2)
  - Insomnia [Not Recovered/Not Resolved]
  - Drug ineffective [Not Recovered/Not Resolved]
